FAERS Safety Report 17771801 (Version 2)
Quarter: 2020Q2

REPORT INFORMATION
  Report Type: Spontaneous
  Country: US (occurrence: US)
  Receive Date: 20200512
  Receipt Date: 20200521
  Transmission Date: 20200714
  Serious: No
  Sender: FDA-Public Use
  Company Number: US-ASTRAZENECA-2020SE60288

PATIENT
  Sex: Male

DRUGS (1)
  1. BYDUREON BCISE [Suspect]
     Active Substance: EXENATIDE
     Indication: BLOOD PRESSURE ABNORMAL
     Route: 065
     Dates: end: 20200418

REACTIONS (5)
  - Dizziness [Unknown]
  - Inability to afford medication [Unknown]
  - Product dose omission [Unknown]
  - Blood pressure increased [Unknown]
  - Insurance issue [Unknown]
